FAERS Safety Report 23616269 (Version 3)
Quarter: 2024Q2

REPORT INFORMATION
  Report Type: Other
  Country: DE (occurrence: DE)
  Receive Date: 20240311
  Receipt Date: 20240408
  Transmission Date: 20240716
  Serious: Yes (Other)
  Sender: FDA-Public Use
  Company Number: DE-MACLEODS PHARMACEUTICALS US LTD-MAC2024045421

PATIENT

DRUGS (4)
  1. TAMSULOSIN [Interacting]
     Active Substance: TAMSULOSIN
     Indication: Benign prostatic hyperplasia
     Dosage: 0.4 MILLIGRAM, QD (START DATE: APR 2022)
     Route: 048
  2. ALCOHOL [Interacting]
     Active Substance: ALCOHOL
     Indication: Product used for unknown indication
     Dosage: UNK (ONE LITER OF BEER OR 0.4 L OF RED WINE)
     Route: 065
  3. TAMSULOSIN [Interacting]
     Active Substance: TAMSULOSIN
     Indication: Benign prostatic hyperplasia
     Dosage: 0.4 MILLIGRAM, QD, ONCE DAILY (AT MIDDAY) CAPSULE (BDF)
     Route: 048
  4. TAMSULOSIN HYDROCHLORIDE [Interacting]
     Active Substance: TAMSULOSIN HYDROCHLORIDE
     Indication: Benign prostatic hyperplasia
     Dosage: 0.4 MILLIGRAM, QD
     Route: 048

REACTIONS (6)
  - Syncope [Recovered/Resolved]
  - Dysuria [Recovering/Resolving]
  - Blood pressure decreased [Recovered/Resolved]
  - Condition aggravated [Recovered/Resolved]
  - Cardiovascular disorder [Recovered/Resolved]
  - Alcohol interaction [Not Recovered/Not Resolved]

NARRATIVE: CASE EVENT DATE: 20220522
